FAERS Safety Report 25863282 (Version 1)
Quarter: 2025Q3

REPORT INFORMATION
  Report Type: Report from Study
  Country: PK (occurrence: PK)
  Receive Date: 20250930
  Receipt Date: 20250930
  Transmission Date: 20251021
  Serious: Yes (Death, Hospitalization)
  Sender: ROCHE
  Company Number: PK-ROCHE-10000396922

PATIENT
  Age: 62 Year
  Sex: Female

DRUGS (1)
  1. RITUXIMAB [Suspect]
     Active Substance: RITUXIMAB
     Indication: Diffuse large B-cell lymphoma
     Route: 042
     Dates: start: 20250520

REACTIONS (8)
  - Abdominal pain [Fatal]
  - Pain in extremity [Fatal]
  - Vomiting [Fatal]
  - Hepatic function abnormal [Fatal]
  - Oral mucosal blistering [Fatal]
  - Gastric ulcer [Fatal]
  - Loss of consciousness [Fatal]
  - Renal impairment [Fatal]
